FAERS Safety Report 5074572-0 (Version None)
Quarter: 2006Q3

REPORT INFORMATION
  Report Type: 
  Country: None (occurrence: None)
  Receive Date: 20060808
  Receipt Date: 20050801
  Transmission Date: 20061208
  Serious: Yes (Hospitalization)
  Sender: FDA-Public Use
  Company Number: US-AMGEN-KDL145112

PATIENT
  Sex: Female
  Weight: 64.9 kg

DRUGS (1)
  1. PROCRIT [Suspect]
     Indication: ANAEMIA OF MALIGNANT DISEASE
     Dates: start: 20050718

REACTIONS (5)
  - HYPERSENSITIVITY [None]
  - MUSCLE MASS [None]
  - MUSCLE TIGHTNESS [None]
  - PAIN [None]
  - PYREXIA [None]
